FAERS Safety Report 5141991-3 (Version None)
Quarter: 2006Q4

REPORT INFORMATION
  Report Type: 
  Country: None (occurrence: None)
  Receive Date: 20061102
  Receipt Date: 20061023
  Transmission Date: 20070319
  Serious: Yes (Other)
  Sender: FDA-Public Use
  Company Number: US-JNJFOC-20060801466

PATIENT
  Sex: Female
  Weight: 43.09 kg

DRUGS (7)
  1. REMICADE [Suspect]
     Indication: CROHN'S DISEASE
     Route: 042
  2. PRILOSEC [Concomitant]
  3. VITAMIN B-12 [Concomitant]
  4. FOLATE [Concomitant]
  5. VITAMIN D [Concomitant]
  6. PREDNISONE TAB [Concomitant]
  7. IMURAN [Concomitant]

REACTIONS (3)
  - CYTOMEGALOVIRUS INFECTION [None]
  - PNEUMOCYSTIS JIROVECI PNEUMONIA [None]
  - SINUSITIS [None]
